FAERS Safety Report 8386617-0 (Version None)
Quarter: 2012Q2

REPORT INFORMATION
  Report Type: 
  Country: None (occurrence: None)
  Receive Date: 20120525
  Receipt Date: 20120321
  Transmission Date: 20120825
  Serious: No
  Sender: FDA-Public Use
  Company Number: US-GLAXOSMITHKLINE-A0970592A

PATIENT
  Sex: Male

DRUGS (2)
  1. NO CONCURRENT MEDICATION [Concomitant]
  2. VERAMYST [Suspect]
     Indication: NASAL OBSTRUCTION
     Dosage: 2SPR PER DAY
     Route: 045
     Dates: start: 20120301, end: 20120318

REACTIONS (2)
  - DRY MOUTH [None]
  - DRUG INEFFECTIVE [None]
